FAERS Safety Report 7088806-4 (Version None)
Quarter: 2010Q4

REPORT INFORMATION
  Report Type: 
  Country: None (occurrence: None)
  Receive Date: 20101108
  Receipt Date: 20101026
  Transmission Date: 20110411
  Serious: Yes (Other)
  Sender: FDA-Public Use
  Company Number: PHHY2010JP58791

PATIENT
  Sex: Female
  Weight: 59 kg

DRUGS (9)
  1. ZOMETA [Suspect]
     Indication: BONE LESION
     Dosage: 4 MG, QW3
     Route: 041
     Dates: start: 20081120
  2. LETROZOLE [Concomitant]
     Indication: BREAST CANCER
     Dosage: 2.5 MG, UNK
     Route: 048
     Dates: start: 20090511
  3. FLUOROURACIL [Concomitant]
     Indication: MALIGNANT PLEURAL EFFUSION
     Dosage: 5TH COURSE
     Dates: start: 20081126
  4. FLUOROURACIL [Concomitant]
     Dosage: 7TH COURSE
     Dates: start: 20090107
  5. EPIRUBICIN [Concomitant]
     Indication: MALIGNANT PLEURAL EFFUSION
     Dosage: 5TH COURSE
     Dates: start: 20081126
  6. EPIRUBICIN [Concomitant]
     Dosage: 6TH COURSE
     Dates: start: 20090607
  7. CYCLOPHOSPHAMIDE [Concomitant]
     Indication: MALIGNANT PLEURAL EFFUSION
     Dosage: 5TH COURSE
     Dates: start: 20081126
  8. CYCLOPHOSPHAMIDE [Concomitant]
     Dosage: 6TH COURSE
     Dates: start: 20090606
  9. PACLITAXEL [Concomitant]
     Dosage: UNK
     Dates: end: 20090416

REACTIONS (7)
  - DENTAL CARIES [None]
  - HAEMATOCRIT DECREASED [None]
  - HAEMOGLOBIN DECREASED [None]
  - LOOSE TOOTH [None]
  - MASTECTOMY [None]
  - MONOCYTE COUNT DECREASED [None]
  - TOOTHACHE [None]
